FAERS Safety Report 9377512 (Version 1)
Quarter: 2013Q3

REPORT INFORMATION
  Report Type: Spontaneous
  Country: US (occurrence: US)
  Receive Date: 20130701
  Receipt Date: 20130701
  Transmission Date: 20140515
  Serious: Yes (Hospitalization)
  Sender: FDA-Public Use
  Company Number: PHEH2013US013780

PATIENT
  Sex: Female

DRUGS (4)
  1. FOCALIN XR [Suspect]
     Dosage: 15 MG, UNK
  2. RITALIN LA [Suspect]
     Dosage: 20 MG, UNK
  3. RISPERIDONE [Concomitant]
     Dosage: UNK UKN, UNK
  4. CONCERTA [Concomitant]
     Dosage: UNK UKN, UNK

REACTIONS (6)
  - Depression [Unknown]
  - Depressed mood [Unknown]
  - Suicidal ideation [Unknown]
  - Feeling abnormal [Recovered/Resolved]
  - Psychomotor hyperactivity [Unknown]
  - Nervousness [Unknown]
